FAERS Safety Report 25498280 (Version 1)
Quarter: 2025Q3

REPORT INFORMATION
  Report Type: Other
  Country: EU (occurrence: EU)
  Receive Date: 20250701
  Receipt Date: 20250701
  Transmission Date: 20251021
  Serious: Yes (Hospitalization)
  Sender: Atnahs Healthcare
  Company Number: None

PATIENT
  Age: 17 Day
  Sex: Male

DRUGS (3)
  1. DIAZEPAM [Suspect]
     Active Substance: DIAZEPAM
     Indication: Anxiety
     Route: 048
     Dates: start: 20250514
  2. AMPHETAMINE [Suspect]
     Active Substance: AMPHETAMINE
     Indication: Drug dependence
     Route: 048
  3. BUPRENORPHINE HYDROCHLORIDE [Suspect]
     Active Substance: BUPRENORPHINE HYDROCHLORIDE
     Indication: Drug dependence
     Dosage: 24 MG, 1X/DAY
     Route: 048
     Dates: start: 20240825, end: 20250531

REACTIONS (3)
  - Withdrawal syndrome [Recovered/Resolved]
  - Maternal exposure during pregnancy [Recovered/Resolved]
  - Term birth [Recovered/Resolved]

NARRATIVE: CASE EVENT DATE: 20240825
